FAERS Safety Report 16326400 (Version 1)
Quarter: 2019Q2

REPORT INFORMATION
  Report Type: Report from Study
  Country: US (occurrence: US)
  Receive Date: 20190517
  Receipt Date: 20190517
  Transmission Date: 20190711
  Serious: Yes (Hospitalization)
  Sender: FDA-Public Use
  Company Number: US-GILEAD-2019-0408405

PATIENT
  Age: 79 Year
  Sex: Female

DRUGS (1)
  1. AMBRISENTAN [Suspect]
     Active Substance: AMBRISENTAN
     Indication: INTERSTITIAL LUNG DISEASE
     Dosage: 5 MG, QD
     Route: 065
     Dates: start: 20181127, end: 201905

REACTIONS (2)
  - Cardiac valve disease [Unknown]
  - Off label use [Unknown]

NARRATIVE: CASE EVENT DATE: 20181127
